FAERS Safety Report 5777137-8 (Version None)
Quarter: 2008Q2

REPORT INFORMATION
  Report Type: 
  Country: None (occurrence: None)
  Receive Date: 20080618
  Receipt Date: 20080611
  Transmission Date: 20081010
  Serious: Yes (Hospitalization)
  Sender: FDA-Public Use
  Company Number: GB-MERCK-0806GBR00047

PATIENT
  Age: 61 Year
  Sex: Female

DRUGS (4)
  1. SINGULAIR [Suspect]
     Indication: ASTHMA
     Route: 048
     Dates: start: 20080515, end: 20080501
  2. PRAMIPEXOLE [Concomitant]
     Route: 065
  3. AMANTADINE HYDROCHLORIDE [Concomitant]
     Route: 065
  4. CARBIDOPA AND ENTACAPONE AND LEVODOPA [Concomitant]
     Route: 065

REACTIONS (1)
  - PARKINSON'S DISEASE [None]
